FAERS Safety Report 5357571-0 (Version None)
Quarter: 2007Q2

REPORT INFORMATION
  Report Type: 
  Country: None (occurrence: None)
  Receive Date: 20070614
  Receipt Date: 20070604
  Transmission Date: 20071010
  Serious: Yes (Hospitalization, Other)
  Sender: FDA-Public Use
  Company Number: US-PFIZER INC-2007046135

PATIENT
  Age: 33 Year
  Sex: Male

DRUGS (3)
  1. GABAPENTIN [Suspect]
     Dosage: DAILY DOSE:3600MG
  2. PAROXETINE [Concomitant]
  3. QUETIAPINE [Concomitant]

REACTIONS (8)
  - AGITATION [None]
  - CONFUSIONAL STATE [None]
  - DISORIENTATION [None]
  - HYPERHIDROSIS [None]
  - HYPERREFLEXIA [None]
  - INTENTIONAL DRUG MISUSE [None]
  - TACHYCARDIA [None]
  - TREMOR [None]
